FAERS Safety Report 7764326-6 (Version None)
Quarter: 2011Q3

REPORT INFORMATION
  Report Type: 
  Country: None (occurrence: None)
  Receive Date: 20110921
  Receipt Date: 20110912
  Transmission Date: 20111222
  Serious: No
  Sender: FDA-Public Use
  Company Number: US-BAYER-2011-085693

PATIENT
  Age: 74 Year
  Sex: Male
  Weight: 98 kg

DRUGS (9)
  1. BICALUTAMIDE [Concomitant]
  2. LOSARTAN POTASSIUM [Concomitant]
  3. METFORMIN HCL [Concomitant]
  4. SIMVASTATIN [Concomitant]
  5. ALEVE (CAPLET) [Suspect]
     Indication: ARTHRITIS
     Dosage: 1 DF, QD
     Route: 048
     Dates: start: 20110801, end: 20110906
  6. METOPROLOL TARTRATE [Concomitant]
  7. TAMOXIFEN CITRATE [Concomitant]
  8. HYDROCHLOROTHIAZIDE [Concomitant]
  9. NORVASC [Concomitant]

REACTIONS (6)
  - FEELING ABNORMAL [None]
  - PRURITUS GENERALISED [None]
  - MUSCULAR WEAKNESS [None]
  - LETHARGY [None]
  - RASH [None]
  - DRUG HYPERSENSITIVITY [None]
